FAERS Safety Report 5959150-0 (Version None)
Quarter: 2008Q4

REPORT INFORMATION
  Report Type: 
  Country: None (occurrence: None)
  Receive Date: 20081120
  Receipt Date: 20080314
  Transmission Date: 20090506
  Serious: No
  Sender: FDA-Public Use
  Company Number: A0715513A

PATIENT
  Age: 32 Year
  Sex: Female

DRUGS (4)
  1. WELLBUTRIN SR [Suspect]
     Indication: DEPRESSION
     Dosage: 100MG THREE TIMES PER DAY
     Route: 048
     Dates: start: 20080130
  2. REMERON [Suspect]
     Dosage: 45MG PER DAY
     Dates: start: 20020101, end: 20080228
  3. KLONOPIN [Concomitant]
  4. TOPROL-XL [Concomitant]

REACTIONS (2)
  - INSOMNIA [None]
  - SINUS TACHYCARDIA [None]
